FAERS Safety Report 6184725-6 (Version None)
Quarter: 2009Q2

REPORT INFORMATION
  Report Type: 
  Country: None (occurrence: None)
  Receive Date: 20090508
  Receipt Date: 20090501
  Transmission Date: 20091009
  Serious: Yes (Other)
  Sender: FDA-Public Use
  Company Number: US-JNJCH-2009012332

PATIENT
  Age: 67 Year
  Sex: Female
  Weight: 90.7 kg

DRUGS (3)
  1. ROGAINE [Suspect]
     Indication: ALOPECIA
     Route: 061
     Dates: start: 20080101, end: 20090420
  2. BETA BLOCKING AGENTS [Concomitant]
     Indication: CARDIOVASCULAR EVENT PROPHYLAXIS
     Dosage: TEXT:1 2 X A DAY
     Route: 065
     Dates: start: 20070101
  3. COUMADIN [Concomitant]
     Indication: CARDIOVASCULAR EVENT PROPHYLAXIS
     Dosage: TEXT:1 5MG 1 X A DAY
     Route: 065

REACTIONS (3)
  - BREAST CANCER [None]
  - BREAST CANCER FEMALE [None]
  - WRONG DRUG ADMINISTERED [None]
